FAERS Safety Report 4293155-3 (Version None)
Quarter: 2004Q1

REPORT INFORMATION
  Report Type: 
  Country: None (occurrence: None)
  Receive Date: 20040212
  Receipt Date: 20030616
  Transmission Date: 20041129
  Serious: No
  Sender: FDA-Public Use
  Company Number: US-GLAXOSMITHKLINE-A0412467A

PATIENT
  Age: 89 Year
  Sex: Female

DRUGS (12)
  1. PAXIL [Suspect]
     Indication: DEPRESSION
     Dosage: 20MG PER DAY
     Route: 048
  2. NORVASC [Concomitant]
  3. LISINOPRIL [Concomitant]
  4. SYNTHROID [Concomitant]
  5. NIACIN [Concomitant]
  6. B12 [Concomitant]
  7. VIT E [Concomitant]
  8. GLUCOSAMINE [Concomitant]
  9. OGEN [Concomitant]
  10. APAP TAB [Concomitant]
  11. MULTIVITAMIN [Concomitant]
  12. CALTRATE [Concomitant]

REACTIONS (4)
  - DEPRESSED MOOD [None]
  - DISSOCIATION [None]
  - DRUG INEFFECTIVE [None]
  - FEELING OF DESPAIR [None]
